FAERS Safety Report 13136700 (Version 1)
Quarter: 2017Q1

REPORT INFORMATION
  Report Type: Spontaneous
  Country: JP (occurrence: JP)
  Receive Date: 20170123
  Receipt Date: 20170123
  Transmission Date: 20170428
  Serious: Yes (Death, Other)
  Sender: FDA-Public Use
  Company Number: JP-ALVOGEN-2017-ALVOGEN-091225

PATIENT
  Age: 2 Year
  Sex: Male
  Weight: 11.5 kg

DRUGS (1)
  1. NIFEDIPINE. [Suspect]
     Active Substance: NIFEDIPINE
     Indication: PRODUCT USED FOR UNKNOWN INDICATION
     Route: 048

REACTIONS (8)
  - Depressed level of consciousness [Unknown]
  - Overdose [Fatal]
  - Heart rate increased [Unknown]
  - Toxicity to various agents [Fatal]
  - Cardiac arrest [Fatal]
  - Seizure [Fatal]
  - Accidental exposure to product by child [Fatal]
  - Blood pressure immeasurable [Unknown]
